FAERS Safety Report 8917555 (Version 2)
Quarter: 2013Q1

REPORT INFORMATION
  Report Type: Spontaneous
  Country: CO (occurrence: CO)
  Receive Date: 20121120
  Receipt Date: 20130311
  Transmission Date: 20140127
  Serious: Yes (Hospitalization, Other)
  Sender: FDA-Public Use
  Company Number: CO-AMGEN-COLSP2012073705

PATIENT
  Age: 68 Year
  Sex: Female

DRUGS (3)
  1. ENBREL [Suspect]
     Indication: RHEUMATOID ARTHRITIS
     Dosage: 50 MG, WEEKLY
     Route: 058
     Dates: start: 2010
  2. ENBREL [Suspect]
     Dosage: 50 MG, WEEKLY
     Route: 058
  3. ARAVA [Concomitant]
     Indication: RHEUMATOID ARTHRITIS
     Dosage: 20 MG, 1X/DAY
     Route: 048
     Dates: start: 2010

REACTIONS (6)
  - Fall [Not Recovered/Not Resolved]
  - Femur fracture [Not Recovered/Not Resolved]
  - Cerebrovascular accident [Unknown]
  - Pain [Unknown]
  - Blood cholesterol increased [Not Recovered/Not Resolved]
  - Gait disturbance [Not Recovered/Not Resolved]
